FAERS Safety Report 16719317 (Version 1)
Quarter: 2019Q3

REPORT INFORMATION
  Report Type: Spontaneous
  Country: PL (occurrence: PL)
  Receive Date: 20190820
  Receipt Date: 20190820
  Transmission Date: 20191005
  Serious: Yes (Other)
  Sender: FDA-Public Use
  Company Number: PHHY2019PL185559

PATIENT
  Age: 65 Year
  Sex: Female

DRUGS (2)
  1. MEAXIN [Concomitant]
     Indication: PRODUCT USED FOR UNKNOWN INDICATION
     Dosage: UNK
     Route: 065
     Dates: start: 201409
  2. GLIVEC [Suspect]
     Active Substance: IMATINIB MESYLATE
     Indication: CHRONIC MYELOID LEUKAEMIA
     Dosage: 400 MG, QD
     Route: 065
     Dates: start: 20070719

REACTIONS (6)
  - Arrhythmia [Unknown]
  - Carcinoembryonic antigen increased [Unknown]
  - Eye oedema [Unknown]
  - Blood calcitonin increased [Unknown]
  - Visual impairment [Unknown]
  - Medullary thyroid cancer [Unknown]

NARRATIVE: CASE EVENT DATE: 2016
